FAERS Safety Report 6494786-2 (Version None)
Quarter: 2009Q4

REPORT INFORMATION
  Report Type: 
  Country: None (occurrence: None)
  Receive Date: 20091214
  Receipt Date: 20090325
  Transmission Date: 20100525
  Serious: No
  Sender: FDA-Public Use
  Company Number: US-BRISTOL-MYERS SQUIBB COMPANY-14559959

PATIENT
  Age: 3 Decade
  Sex: Male

DRUGS (2)
  1. ABILIFY [Suspect]
     Dosage: 2MG/QD WAS TAKEN FOR 1 WEEK, THEN INCREASED TO 5MG FOR 2ND WEEK
  2. LUVOX [Suspect]

REACTIONS (1)
  - LETHARGY [None]
